FAERS Safety Report 11073989 (Version 1)
Quarter: 2015Q2

REPORT INFORMATION
  Report Type: Spontaneous
  Country: US (occurrence: US)
  Receive Date: 20150429
  Receipt Date: 20150429
  Transmission Date: 20150821
  Serious: Yes (Other)
  Sender: FDA-Public Use
  Company Number: US-ROCHE-1568375

PATIENT
  Sex: Female

DRUGS (15)
  1. NORVASC [Concomitant]
     Active Substance: AMLODIPINE BESYLATE
     Route: 048
  2. CEFTRIAXONE. [Suspect]
     Active Substance: CEFTRIAXONE
     Indication: PRODUCT USED FOR UNKNOWN INDICATION
     Route: 065
  3. XANAX [Concomitant]
     Active Substance: ALPRAZOLAM
     Indication: ANXIETY
     Dosage: TAKE 1 TAB BY MOUTH
     Route: 048
  4. ZYRTEC [Concomitant]
     Active Substance: CETIRIZINE HYDROCHLORIDE
     Dosage: 1 TAB BY MOUTH
     Route: 048
  5. LOMOTIL (UNITED STATES) [Concomitant]
     Dosage: 2.5 TO 0.025 MG TAB.
     Route: 048
  6. FLONASE (UNITED STATES) [Concomitant]
     Dosage: 1 SPRAY BY NOSTRILS
     Route: 045
  7. PRINIVIL [Concomitant]
     Active Substance: LISINOPRIL
     Dosage: 1 TABLET
     Route: 048
  8. K-TAB [Concomitant]
     Active Substance: POTASSIUM CHLORIDE
     Dosage: 1 TAB BY MOUTH
     Route: 048
  9. ASPIRIN. [Concomitant]
     Active Substance: ASPIRIN
     Route: 048
  10. LYRICA [Concomitant]
     Active Substance: PREGABALIN
     Route: 048
  11. MOBIC [Concomitant]
     Active Substance: MELOXICAM
     Dosage: 1 DAY
     Route: 048
  12. LEVOXYL [Concomitant]
     Active Substance: LEVOTHYROXINE SODIUM
     Route: 048
  13. SEROQUEL [Concomitant]
     Active Substance: QUETIAPINE FUMARATE
     Route: 048
  14. K-DUR [Concomitant]
     Active Substance: POTASSIUM CHLORIDE
     Dosage: TAKE 0.5 TABS BY MOUTH ONCE DAILY
     Route: 048
  15. MINIPRESS [Concomitant]
     Active Substance: PRAZOSIN HYDROCHLORIDE
     Dosage: 1 TAB AT BED TIME
     Route: 048

REACTIONS (1)
  - Dyspnoea [Unknown]
